FAERS Safety Report 19620381 (Version 1)
Quarter: 2021Q3

REPORT INFORMATION
  Report Type: Spontaneous
  Country: CA (occurrence: CA)
  Receive Date: 20210728
  Receipt Date: 20210728
  Transmission Date: 20211014
  Serious: Yes (Hospitalization)
  Sender: FDA-Public Use
  Company Number: CA-ROCHE-2877186

PATIENT
  Sex: Female

DRUGS (5)
  1. DICYCLOMINE HYDROCHLORIDE. [Concomitant]
     Active Substance: DICYCLOMINE HYDROCHLORIDE
  2. RITUXIMAB. [Suspect]
     Active Substance: RITUXIMAB
     Indication: HENOCH-SCHONLEIN PURPURA
     Route: 041
  3. PANTOLOC [Concomitant]
     Active Substance: PANTOPRAZOLE SODIUM
  4. PREDNISONE. [Concomitant]
     Active Substance: PREDNISONE
  5. VALPROIC ACID. [Concomitant]
     Active Substance: VALPROIC ACID

REACTIONS (2)
  - Ulcer haemorrhage [Not Recovered/Not Resolved]
  - Off label use [Unknown]
